FAERS Safety Report 14266469 (Version 1)
Quarter: 2017Q4

REPORT INFORMATION
  Report Type: Report from Study
  Country: AU (occurrence: AU)
  Receive Date: 20171210
  Receipt Date: 20171210
  Transmission Date: 20180321
  Serious: Yes (Hospitalization, Disabling)
  Sender: FDA-Public Use
  Company Number: PHHO2016AU013553

PATIENT
  Age: 41 Year
  Sex: Female
  Weight: 74.5 kg

DRUGS (9)
  1. LYRICA [Concomitant]
     Active Substance: PREGABALIN
     Indication: BACK PAIN
     Dosage: 75 MG, NAC
     Route: 048
     Dates: start: 20160318, end: 20160914
  2. ZOLADEX [Suspect]
     Active Substance: GOSERELIN ACETATE
     Indication: BREAST CANCER
     Dosage: 3.6 MG, QW4
     Route: 058
     Dates: start: 20160405
  3. PARADOL [Concomitant]
     Indication: ARTHRALGIA
     Dosage: 1 G, PRN
     Route: 048
     Dates: start: 201608, end: 201609
  4. OXYNORM [Concomitant]
     Active Substance: OXYCODONE HYDROCHLORIDE
     Indication: ARTHRALGIA
     Dosage: 5 MG, PRN
     Route: 048
     Dates: start: 20160901
  5. VITAMIN D [Concomitant]
     Active Substance: CHOLECALCIFEROL
     Indication: PRODUCT USED FOR UNKNOWN INDICATION
     Dosage: BD
     Route: 048
     Dates: start: 20160301
  6. MOVICOL [Concomitant]
     Active Substance: POLYETHYLENE GLYCOL 3350\POTASSIUM CHLORIDE\SODIUM BICARBONATE\SODIUM CHLORIDE
     Indication: CONSTIPATION
     Dosage: PRN
     Route: 048
     Dates: start: 201601
  7. LEE011 [Suspect]
     Active Substance: RIBOCICLIB
     Indication: BREAST CANCER
     Dosage: 600 MG, QD (ONCE DAILY ON DAYS 1 TO 21 IN A 28 DAY CYCLE)
     Route: 048
     Dates: start: 20160318, end: 20160825
  8. COMPARATOR LETROZOLE [Suspect]
     Active Substance: LETROZOLE
     Indication: BREAST CANCER
     Dosage: 2.5 MG, QD
     Route: 048
     Dates: start: 20160318
  9. DENOSUMAB [Concomitant]
     Active Substance: DENOSUMAB
     Indication: PRODUCT USED FOR UNKNOWN INDICATION
     Dosage: 120 MG, QW4 (4 WEEKLY)
     Route: 058
     Dates: start: 20160308

REACTIONS (1)
  - Drug-induced liver injury [Recovering/Resolving]

NARRATIVE: CASE EVENT DATE: 20160905
